FAERS Safety Report 8286358-4 (Version None)
Quarter: 2012Q1

REPORT INFORMATION
  Report Type: 
  Country: None (occurrence: None)
  Receive Date: 20120327
  Receipt Date: 20120313
  Transmission Date: 20120608
  Serious: Yes (Hospitalization)
  Sender: FDA-Public Use
  Company Number: HAPL-014-11-GB

PATIENT
  Age: 33 Year
  Sex: Female

DRUGS (7)
  1. LANSOPRAZOLE [Suspect]
     Indication: GASTROOESOPHAGEAL REFLUX PROPHYLAXIS
     Dosage: 30 MG (1X 1/D) ORAL
     Route: 048
     Dates: start: 20100907, end: 20100928
  2. NPLATE [Suspect]
     Indication: IDIOPATHIC THROMBOCYTOPENIC PURPURA
     Dosage: 1 UG/KG (1X 1/D) SUBCUTANEOUS
     Route: 058
     Dates: start: 20100420, end: 20100920
  3. NORETHIDRONE [Suspect]
     Indication: PRODUCT USED FOR UNKNOWN INDICATION
     Dosage: 15 MG ORAL
     Route: 048
     Dates: start: 20100922, end: 20100928
  4. RITUXIMAB (TRADENAME UNKNOWN) [Suspect]
     Indication: PRODUCT USED FOR UNKNOWN INDICATION
     Dosage: 375 MG/M2 (2X 1  / WEEKS) INTRAVENOUS (NOT OTHERWISE SPECIFIED)
     Route: 042
     Dates: start: 20100917, end: 20100924
  5. TRANEXAMIC ACID [Suspect]
     Indication: PRODUCT USED FOR UNKNOWN INDICATION
     Dosage: 4 DF ORAL
     Route: 048
     Dates: start: 20100922, end: 20100928
  6. DEXAMETHASONE [Concomitant]
  7. IMMUNE GLOBULIN (HUMAN) [Suspect]
     Indication: PRODUCT USED FOR UNKNOWN INDICATION
     Dosage: 1000 MG/KG (1X 1/D) INTRAVENOUS (NOT OTHERWISE SPECIFIED)
     Route: 042
     Dates: start: 20100922, end: 20100923

REACTIONS (14)
  - IDIOPATHIC THROMBOCYTOPENIC PURPURA [None]
  - NO THERAPEUTIC RESPONSE [None]
  - HAEMOGLOBIN DECREASED [None]
  - HAEMATOCRIT DECREASED [None]
  - RED BLOOD CELL COUNT DECREASED [None]
  - ARTHRALGIA [None]
  - RASH ERYTHEMATOUS [None]
  - DISEASE RECURRENCE [None]
  - PURPURA [None]
  - MELAENA [None]
  - RECTAL HAEMORRHAGE [None]
  - VAGINAL HAEMORRHAGE [None]
  - BLOOD BLISTER [None]
  - RASH MACULO-PAPULAR [None]
